FAERS Safety Report 4754808-3 (Version None)
Quarter: 2005Q3

REPORT INFORMATION
  Report Type: 
  Country: None (occurrence: None)
  Receive Date: 20050826
  Receipt Date: 20050826
  Transmission Date: 20060218
  Serious: Yes (Hospitalization, Other)
  Sender: FDA-Public Use
  Company Number: None

PATIENT
  Sex: Female
  Weight: 118.8 kg

DRUGS (5)
  1. FLUOROURACIL [Suspect]
     Indication: BREAST CANCER
     Dosage: SEE IMAGE
     Route: 042
     Dates: start: 20050817
  2. EPIRUBICIN [Suspect]
     Dosage: SEE IMAGE
     Route: 042
     Dates: start: 20050817
  3. CYCLOPHOSPHAMIDE [Suspect]
     Dosage: SEE IMAGE
     Route: 042
     Dates: start: 20050817
  4. CELECOXIB [Suspect]
     Dosage: SEE IMAGE
     Route: 048
     Dates: start: 20050817
  5. PLACEBO [Suspect]
     Dosage: SEE IMAGE
     Route: 048
     Dates: start: 20050817

REACTIONS (4)
  - ANGIOPATHY [None]
  - CHEST PAIN [None]
  - DYSPNOEA [None]
  - PULMONARY EMBOLISM [None]
